FAERS Safety Report 17686603 (Version 1)
Quarter: 2020Q2

REPORT INFORMATION
  Report Type: Report from Study
  Country: None (occurrence: CA)
  Receive Date: 20200420
  Receipt Date: 20200420
  Transmission Date: 20200714
  Serious: Yes (Other)
  Sender: FDA-Public Use
  Company Number: CA-ABBVIE-20K-028-3369938-00

PATIENT
  Age: 49 Year
  Sex: Male

DRUGS (1)
  1. HUMIRA [Suspect]
     Active Substance: ADALIMUMAB
     Indication: PSORIASIS
     Route: 058
     Dates: start: 20141115, end: 202001

REACTIONS (8)
  - Influenza like illness [Recovering/Resolving]
  - Near death experience [Recovering/Resolving]
  - Therapeutic product effect decreased [Unknown]
  - Coronavirus infection [Recovering/Resolving]
  - Coma [Recovered/Resolved]
  - Endocarditis bacterial [Recovering/Resolving]
  - Immunosuppression [Not Recovered/Not Resolved]
  - Pneumonia bacterial [Recovering/Resolving]

NARRATIVE: CASE EVENT DATE: 202001
